FAERS Safety Report 22337507 (Version 1)
Quarter: 2023Q2

REPORT INFORMATION
  Report Type: Spontaneous
  Country: US (occurrence: US)
  Receive Date: 20230518
  Receipt Date: 20230518
  Transmission Date: 20230722
  Serious: Yes (Other)
  Sender: FDA-Public Use
  Company Number: US-SAMSUNG BIOEPIS-SB-2023-13222

PATIENT
  Age: 4 Year
  Sex: Female

DRUGS (3)
  1. INFLIXIMAB [Suspect]
     Active Substance: INFLIXIMAB
     Indication: Juvenile idiopathic arthritis
     Dosage: UNKNOWN
     Route: 065
  2. PREDNISOLONE [Concomitant]
     Active Substance: PREDNISOLONE
     Indication: Juvenile idiopathic arthritis
     Dosage: UNKNOWN
     Route: 065
  3. METHOTREXATE [Concomitant]
     Active Substance: METHOTREXATE
     Indication: Juvenile idiopathic arthritis
     Dosage: UNKNOWN
     Route: 065

REACTIONS (7)
  - Lymphadenopathy [Recovered/Resolved]
  - Anaemia [Unknown]
  - Abscess [Recovered/Resolved]
  - Splenic lesion [Recovered/Resolved]
  - Gene mutation [Unknown]
  - Interferon gamma receptor deficiency [Unknown]
  - Off label use [Unknown]
